FAERS Safety Report 7324909-4 (Version None)
Quarter: 2011Q1

REPORT INFORMATION
  Report Type: 
  Country: None (occurrence: None)
  Receive Date: 20110301
  Receipt Date: 20110301
  Transmission Date: 20110831
  Serious: Yes (Hospitalization)
  Sender: FDA-Public Use
  Company Number: DE-ABBOTT-10P-062-0674604-00

PATIENT
  Sex: Male
  Weight: 100 kg

DRUGS (2)
  1. HUMIRA [Suspect]
     Indication: PSORIASIS
     Dates: start: 20100126, end: 20100917
  2. L-THYROX [Concomitant]
     Indication: PSORIASIS
     Route: 048
     Dates: start: 20100517

REACTIONS (1)
  - THYROID DISORDER [None]
